FAERS Safety Report 23783100 (Version 1)
Quarter: 2024Q2

REPORT INFORMATION
  Report Type: Spontaneous
  Country: CN (occurrence: CN)
  Receive Date: 20240425
  Receipt Date: 20240425
  Transmission Date: 20240716
  Serious: Yes (Other)
  Sender: FDA-Public Use
  Company Number: CN-SANDOZ-SDZ2024CN042384

PATIENT
  Age: 57 Year
  Sex: Female

DRUGS (2)
  1. VORICONAZOLE [Suspect]
     Active Substance: VORICONAZOLE
     Indication: Bronchopulmonary aspergillosis
     Dosage: 200 MG, Q12H
     Route: 048
     Dates: start: 20240413
  2. VORICONAZOLE [Suspect]
     Active Substance: VORICONAZOLE
     Dosage: 300 MG, (200 MG IN THE MORNING AND 100 MG IN THE EVENING)
     Route: 048
     Dates: start: 20240418, end: 20240422

REACTIONS (4)
  - Drug intolerance [Unknown]
  - Hallucination [Recovering/Resolving]
  - Hallucination, visual [Recovering/Resolving]
  - Insomnia [Recovering/Resolving]

NARRATIVE: CASE EVENT DATE: 20240418
